FAERS Safety Report 5217211-8 (Version None)
Quarter: 2007Q1

REPORT INFORMATION
  Report Type: 
  Country: None (occurrence: None)
  Receive Date: 20070124
  Receipt Date: 20061227
  Transmission Date: 20070707
  Serious: Yes (Other)
  Sender: FDA-Public Use
  Company Number: DE-BAYER-200611794BVD

PATIENT
  Age: 74 Year
  Sex: Female

DRUGS (11)
  1. ADALAT [Suspect]
     Route: 065
  2. REMERGIL [Suspect]
     Route: 048
     Dates: start: 20000923, end: 20000924
  3. LEVOTHYROXINE SODIUM [Concomitant]
     Route: 048
  4. TRILEPTAL [Concomitant]
     Route: 048
  5. SPASMEX [Concomitant]
     Route: 048
  6. TRAMADOL HCL [Concomitant]
     Route: 048
  7. KALINOR [Concomitant]
     Route: 048
  8. NOVALGIN [Concomitant]
     Route: 048
  9. IBUPROFEN [Concomitant]
     Route: 048
  10. CLEXANE [Concomitant]
     Route: 058
     Dates: start: 20000915, end: 20001013
  11. XIMOVAN [Concomitant]
     Route: 048
     Dates: start: 20000923

REACTIONS (3)
  - BLOOD PRESSURE DECREASED [None]
  - CIRCULATORY COLLAPSE [None]
  - LOSS OF CONSCIOUSNESS [None]
